FAERS Safety Report 10200610 (Version 1)
Quarter: 2014Q2

REPORT INFORMATION
  Report Type: Spontaneous
  Country: US (occurrence: US)
  Receive Date: 20140528
  Receipt Date: 20140528
  Transmission Date: 20141212
  Serious: No
  Sender: FDA-Public Use
  Company Number: US-009507513-1405USA010170

PATIENT
  Sex: 0

DRUGS (5)
  1. NASONEX [Suspect]
     Indication: SEASONAL ALLERGY
     Route: 055
  2. CLARITIN [Suspect]
     Indication: SEASONAL ALLERGY
     Route: 048
  3. ZYRTEC [Concomitant]
  4. ALAVERT [Concomitant]
  5. ALLEGRA [Concomitant]

REACTIONS (1)
  - Drug ineffective [Not Recovered/Not Resolved]
